FAERS Safety Report 25699565 (Version 1)
Quarter: 2025Q3

REPORT INFORMATION
  Report Type: Report from Study
  Country: CA (occurrence: None)
  Receive Date: 20250819
  Receipt Date: 20250819
  Transmission Date: 20251021
  Serious: Yes (Other)
  Sender: ORION
  Company Number: CA-PFIZER INC-202101777677

PATIENT
  Age: 43 Year
  Sex: Male

DRUGS (8)
  1. METHOTREXATE [Suspect]
     Active Substance: METHOTREXATE
     Indication: Product used for unknown indication
  2. SULFASALAZINE [Suspect]
     Active Substance: SULFASALAZINE
     Indication: Product used for unknown indication
  3. ESOMEPRAZOLE MAGNESIUM [Suspect]
     Active Substance: ESOMEPRAZOLE MAGNESIUM
     Indication: Product used for unknown indication
  4. HYRIMOZ [Suspect]
     Active Substance: ADALIMUMAB-ADAZ
     Indication: Psoriatic arthropathy
  5. ARAVA [Concomitant]
     Active Substance: LEFLUNOMIDE
  6. BISOPROLOL [Concomitant]
     Active Substance: BISOPROLOL
  7. FOLIC ACID [Concomitant]
     Active Substance: FOLIC ACID
  8. MELOXICAM [Concomitant]
     Active Substance: MELOXICAM

REACTIONS (11)
  - Arthralgia [Unknown]
  - Blood pressure systolic increased [Unknown]
  - Glomerular filtration rate increased [Unknown]
  - Headache [Unknown]
  - Hepatic enzyme increased [Unknown]
  - Joint stiffness [Unknown]
  - Joint swelling [Unknown]
  - Psoriasis [Unknown]
  - Psoriatic arthropathy [Unknown]
  - Rash [Unknown]
  - Product dose omission issue [Unknown]
